FAERS Safety Report 10131304 (Version 1)
Quarter: 2014Q2

REPORT INFORMATION
  Report Type: Spontaneous
  Country: US (occurrence: US)
  Receive Date: 20140428
  Receipt Date: 20140428
  Transmission Date: 20141212
  Serious: No
  Sender: FDA-Public Use
  Company Number: US-GLAXOSMITHKLINE-A1056425A

PATIENT
  Age: 52 Year
  Sex: Female

DRUGS (8)
  1. ONDANSETRON [Suspect]
     Indication: PRODUCT USED FOR UNKNOWN INDICATION
     Dosage: 4MG UNKNOWN
     Route: 065
     Dates: start: 20131115, end: 20131115
  2. FENTANYL CITRATE [Suspect]
     Indication: PRODUCT USED FOR UNKNOWN INDICATION
     Dosage: 50MCG UNKNOWN
     Route: 065
     Dates: start: 20131115, end: 20131115
  3. MIDAZOLAM [Suspect]
     Indication: PRODUCT USED FOR UNKNOWN INDICATION
     Dosage: 2MG UNKNOWN
     Route: 065
     Dates: start: 20131115, end: 20131115
  4. SALINE FLUSH [Suspect]
     Indication: PRODUCT USED FOR UNKNOWN INDICATION
     Route: 065
     Dates: start: 20131115, end: 20131115
  5. CYCLOBENZAPRINE [Concomitant]
  6. EPINEPHRINE [Concomitant]
  7. METOCLOPRAMIDE [Concomitant]
  8. OMEPRAZOLE [Concomitant]

REACTIONS (2)
  - Injection site erythema [Recovered/Resolved]
  - Injection site urticaria [Recovered/Resolved]
